FAERS Safety Report 7316441-9 (Version None)
Quarter: 2011Q1

REPORT INFORMATION
  Report Type: 
  Country: None (occurrence: None)
  Receive Date: 20110225
  Receipt Date: 20110216
  Transmission Date: 20110831
  Serious: Yes (Hospitalization, Disabling, Other)
  Sender: FDA-Public Use
  Company Number: US-MERCK-0802USA00106

PATIENT
  Age: 64 Year
  Sex: Female
  Weight: 53 kg

DRUGS (7)
  1. VITAMIN D (UNSPECIFIED) [Concomitant]
     Indication: OSTEOPOROSIS
     Route: 065
  2. FOSAMAX [Suspect]
     Route: 048
  3. PAMELOR [Concomitant]
     Route: 065
     Dates: start: 19840101
  4. FOSAMAX PLUS D [Concomitant]
     Indication: OSTEOPOROSIS
     Route: 048
  5. CALCIUM (UNSPECIFIED) [Concomitant]
     Indication: OSTEOPOROSIS
     Route: 065
     Dates: start: 19890101
  6. FOSAMAX [Suspect]
     Indication: OSTEOPOROSIS
     Route: 048
     Dates: start: 20011201, end: 20060101
  7. FOSAMAX [Suspect]
     Route: 048
     Dates: start: 20010401, end: 20011201

REACTIONS (50)
  - UTERINE PROLAPSE [None]
  - EUSTACHIAN TUBE DYSFUNCTION [None]
  - ECCHYMOSIS [None]
  - PANIC DISORDER [None]
  - VERTIGO [None]
  - TRAUMATIC ULCER [None]
  - PERICARDITIS ADHESIVE [None]
  - OSTEONECROSIS OF JAW [None]
  - GASTRIC ULCER [None]
  - PURULENCE [None]
  - PHLEBITIS DEEP [None]
  - BONE EROSION [None]
  - OSTEOARTHRITIS [None]
  - FIBROMA [None]
  - OEDEMA PERIPHERAL [None]
  - PAIN IN EXTREMITY [None]
  - PAIN IN JAW [None]
  - PARAESTHESIA [None]
  - MUSCLE STRAIN [None]
  - DEPRESSION [None]
  - DIARRHOEA [None]
  - BLADDER PROLAPSE [None]
  - SINUSITIS [None]
  - ABSCESS ORAL [None]
  - BRONCHITIS [None]
  - DYSPHAGIA [None]
  - ENTHESOPATHY [None]
  - RASH [None]
  - URINARY INCONTINENCE [None]
  - BLADDER TRABECULATION [None]
  - CYSTITIS [None]
  - OVERDOSE [None]
  - ADVERSE DRUG REACTION [None]
  - EAR PAIN [None]
  - GASTROOESOPHAGEAL REFLUX DISEASE [None]
  - VISION BLURRED [None]
  - ORAL PAIN [None]
  - MUCOSAL INFLAMMATION [None]
  - HIATUS HERNIA [None]
  - OSTEOMYELITIS [None]
  - ACTINOMYCOSIS [None]
  - CONTUSION [None]
  - GLAUCOMA [None]
  - NAUSEA [None]
  - SKIN CANCER [None]
  - FALL [None]
  - VIRAL INFECTION [None]
  - LIP SWELLING [None]
  - HAEMOPTYSIS [None]
  - ANAEMIA POSTOPERATIVE [None]
